FAERS Safety Report 22633366 (Version 1)
Quarter: 2023Q2

REPORT INFORMATION
  Report Type: Spontaneous
  Country: US (occurrence: US)
  Receive Date: 20230623
  Receipt Date: 20230623
  Transmission Date: 20230722
  Serious: Yes (Other)
  Sender: FDA-Public Use
  Company Number: US-Accord-362740

PATIENT
  Age: 40 Year
  Sex: Female
  Weight: 72.57 kg

DRUGS (2)
  1. FINGOLIMOD [Suspect]
     Active Substance: FINGOLIMOD
     Indication: Multiple sclerosis
     Route: 048
     Dates: start: 202212, end: 202301
  2. SINGULAIR [Concomitant]
     Active Substance: MONTELUKAST SODIUM

REACTIONS (3)
  - Blindness [Recovered/Resolved]
  - Optic neuritis [Recovered/Resolved]
  - Visual impairment [Recovered/Resolved]

NARRATIVE: CASE EVENT DATE: 20221201
